FAERS Safety Report 7931278-5 (Version None)
Quarter: 2011Q4

REPORT INFORMATION
  Report Type: 
  Country: None (occurrence: None)
  Receive Date: 20111121
  Receipt Date: 20111112
  Transmission Date: 20120403
  Serious: Yes (Hospitalization, Other)
  Sender: FDA-Public Use
  Company Number: US-BAYER-201018638NA

PATIENT
  Age: 19 Year
  Sex: Female
  Weight: 114 kg

DRUGS (17)
  1. FLUCONAZOLE [Concomitant]
     Route: 065
     Dates: start: 20080103
  2. YAZ [Suspect]
     Indication: ORAL CONTRACEPTION
     Route: 048
     Dates: start: 20080101, end: 20080301
  3. BUPROPION HYDROCHLORIDE [Concomitant]
  4. I.V. SOLUTIONS [Concomitant]
  5. CYMBALTA [Concomitant]
     Route: 065
  6. MULTI-VITAMINS [Concomitant]
     Dosage: DAILY
     Route: 065
  7. METRONIDAZOLE [Concomitant]
     Route: 065
     Dates: start: 20080220
  8. WELLBUTRIN [Concomitant]
  9. LASIX [Concomitant]
     Dosage: DAILY DOSE 20 MG
     Route: 065
     Dates: start: 20080401
  10. LORTAB [Concomitant]
     Indication: PAIN IN EXTREMITY
     Dosage: EVERY 6 HOURS AS NEEDED
     Route: 065
  11. TOPAMAX [Concomitant]
     Route: 065
     Dates: start: 20080220
  12. VITAMIN K TAB [Concomitant]
     Route: 058
  13. NEXIUM [Concomitant]
     Dosage: DAILY DOSE 40 MG
     Route: 048
     Dates: start: 20080501
  14. ZOFRAN [Concomitant]
     Route: 042
  15. IBUPROFEN (ADVIL) [Concomitant]
  16. HYDROCHLOROTHIAZIDE [Concomitant]
     Route: 065
     Dates: start: 20080220
  17. POTASSIUM CHLORIDE [Concomitant]
     Route: 065
     Dates: start: 20080401

REACTIONS (9)
  - FEELING HOT [None]
  - CYANOSIS [None]
  - CHOLESTEROSIS [None]
  - ERYTHEMA [None]
  - OEDEMA PERIPHERAL [None]
  - PULMONARY EMBOLISM [None]
  - ABDOMINAL PAIN UPPER [None]
  - DEEP VEIN THROMBOSIS [None]
  - CHOLECYSTITIS CHRONIC [None]
